FAERS Safety Report 10252025 (Version 3)
Quarter: 2018Q4

REPORT INFORMATION
  Report Type: Spontaneous
  Country: IT (occurrence: IT)
  Receive Date: 20140623
  Receipt Date: 20181203
  Transmission Date: 20190204
  Serious: Yes (Congenital Anomaly, Other)
  Sender: FDA-Public Use
  Company Number: IT-TEVA-489466ISR

PATIENT

DRUGS (4)
  1. INTERFERON BETA-1A (IFNB-1A) [Suspect]
     Active Substance: INTERFERON BETA-1A
     Route: 065
  2. IFNB-1B [Suspect]
     Active Substance: INTERFERON BETA-1B
     Route: 065
  3. GLATIRAMER ACETATE. [Suspect]
     Active Substance: GLATIRAMER ACETATE
     Dosage: THE SUSPECT MEDICATION WAS TAKEN BY THE FATHER
     Route: 065
  4. INTERFERON BETA-1A (IFNB-1A) [Suspect]
     Active Substance: INTERFERON BETA-1A
     Route: 065

REACTIONS (5)
  - Oesophageal atresia [Unknown]
  - Jaundice [Unknown]
  - Developmental hip dysplasia [Unknown]
  - Haemangioma [Unknown]
  - Paternal exposure before pregnancy [Unknown]
